FAERS Safety Report 8306087-8 (Version None)
Quarter: 2012Q2

REPORT INFORMATION
  Report Type: 
  Country: None (occurrence: None)
  Receive Date: 20120423
  Receipt Date: 20120411
  Transmission Date: 20120825
  Serious: Yes (Other)
  Sender: FDA-Public Use
  Company Number: CA-ROCHE-1059556

PATIENT
  Sex: Female
  Weight: 78.088 kg

DRUGS (7)
  1. METHOTREXATE [Concomitant]
  2. PRINIVIL [Concomitant]
  3. CALCIUM/VITAMIN D [Concomitant]
  4. ACTEMRA [Suspect]
     Route: 042
     Dates: start: 20111003
  5. FOLIC ACID [Concomitant]
  6. ACTEMRA [Suspect]
     Indication: RHEUMATOID ARTHRITIS
     Route: 042
     Dates: start: 20110215
  7. TYLENOL (CAPLET) [Concomitant]

REACTIONS (5)
  - SINUSITIS [None]
  - MUSCULOSKELETAL PAIN [None]
  - PAIN IN EXTREMITY [None]
  - BUNDLE BRANCH BLOCK RIGHT [None]
  - CHEST PAIN [None]
